FAERS Safety Report 5398125-X (Version None)
Quarter: 2007Q3

REPORT INFORMATION
  Report Type: 
  Country: None (occurrence: None)
  Receive Date: 20070726
  Receipt Date: 20070717
  Transmission Date: 20080115
  Serious: Yes (Other)
  Sender: FDA-Public Use
  Company Number: US-PFIZER INC-2007059029

PATIENT
  Sex: Female
  Weight: 59 kg

DRUGS (3)
  1. FLAGYL [Suspect]
     Indication: GASTROENTERITIS
     Dates: start: 20070628, end: 20070712
  2. DRUG, UNSPECIFIED [Concomitant]
  3. SINGULAIR [Concomitant]

REACTIONS (4)
  - CONVULSION [None]
  - SPEECH DISORDER [None]
  - THROMBOSIS [None]
  - TREMOR [None]
